FAERS Safety Report 7386488-5 (Version None)
Quarter: 2011Q1

REPORT INFORMATION
  Report Type: 
  Country: None (occurrence: None)
  Receive Date: 20110331
  Receipt Date: 20110324
  Transmission Date: 20110831
  Serious: Yes (Hospitalization, Other)
  Sender: FDA-Public Use
  Company Number: US-AMGEN-USASP2011015102

PATIENT
  Age: 71 Year
  Sex: Female
  Weight: 69.9 kg

DRUGS (7)
  1. HYDROCODONE BITARTRATE [Concomitant]
  2. VINCRISTINE [Concomitant]
  3. TYLENOL (CAPLET) [Concomitant]
  4. AMBIEN [Concomitant]
  5. NPLATE [Suspect]
     Indication: IDIOPATHIC THROMBOCYTOPENIC PURPURA
     Dosage: 200 A?G, QWK
     Route: 058
     Dates: start: 20110111
  6. IMMUNOGLOBULINS [Concomitant]
  7. FOLIC ACID [Concomitant]

REACTIONS (5)
  - REPETITIVE SPEECH [None]
  - PLATELET COUNT DECREASED [None]
  - CONFUSIONAL STATE [None]
  - JAUNDICE [None]
  - TRANSFUSION REACTION [None]
